FAERS Safety Report 6875121-4 (Version None)
Quarter: 2010Q3

REPORT INFORMATION
  Report Type: 
  Country: None (occurrence: None)
  Receive Date: 20100727
  Receipt Date: 20070522
  Transmission Date: 20110219
  Serious: Yes (Death, Hospitalization, Other)
  Sender: FDA-Public Use
  Company Number: US-PFIZER INC-2005168369

PATIENT
  Sex: Male

DRUGS (6)
  1. CELEBREX [Suspect]
     Indication: PAIN
     Dates: start: 19990201
  2. CELEBREX [Suspect]
     Indication: RHEUMATOID ARTHRITIS
  3. ARAVA [Concomitant]
     Indication: RHEUMATOID ARTHRITIS
     Dosage: Q.O.D. AS TOLERATED
     Dates: start: 20000721
  4. DEXAMETHASONE [Concomitant]
  5. PLAQUENIL [Concomitant]
     Dates: start: 19970626
  6. ENBREL [Concomitant]
     Dosage: 2 EVERY 1 WEEKS
     Route: 058
     Dates: start: 20030725

REACTIONS (3)
  - ANGINA PECTORIS [None]
  - GASTROOESOPHAGEAL REFLUX DISEASE [None]
  - MYOCARDIAL INFARCTION [None]
